FAERS Safety Report 10458926 (Version 1)
Quarter: 2014Q3

REPORT INFORMATION
  Report Type: Spontaneous
  Country: ES (occurrence: ES)
  Receive Date: 20140917
  Receipt Date: 20140917
  Transmission Date: 20150326
  Serious: Yes (Death, Hospitalization, Other)
  Sender: FDA-Public Use
  Company Number: ES-ELI_LILLY_AND_COMPANY-ES201409004105

PATIENT
  Age: 67 Year
  Sex: Male

DRUGS (3)
  1. GEMCITABINE HYDROCHLORIDE. [Suspect]
     Active Substance: GEMCITABINE HYDROCHLORIDE
     Indication: RENAL CANCER
     Dosage: 1000 MG/M2, OTHER
     Route: 042
  2. SUNITINIB [Suspect]
     Active Substance: SUNITINIB
     Indication: RENAL CANCER
     Dosage: 37.5 MG, QD
     Route: 048
  3. CAPECITABINE [Suspect]
     Active Substance: CAPECITABINE
     Indication: RENAL CANCER
     Dosage: 650 MG/M2, CYCLICAL
     Route: 048

REACTIONS (11)
  - Oedema peripheral [Unknown]
  - Mucosal inflammation [Unknown]
  - General physical health deterioration [Unknown]
  - Disease progression [Fatal]
  - Pain [Unknown]
  - Respiratory tract infection [Unknown]
  - Asthenia [Unknown]
  - Nausea [Unknown]
  - Thrombocytopenia [Unknown]
  - Diarrhoea [Unknown]
  - Decreased appetite [Unknown]
